FAERS Safety Report 5422875-X (Version None)
Quarter: 2007Q3

REPORT INFORMATION
  Report Type: 
  Country: None (occurrence: None)
  Receive Date: 20070727
  Receipt Date: 20070601
  Transmission Date: 20080115
  Serious: Yes (Life-Threatening)
  Sender: FDA-Public Use
  Company Number: 263155

PATIENT
  Age: 56 Year
  Sex: Female

DRUGS (2)
  1. LEVEMIR [Suspect]
     Indication: TYPE 1 DIABETES MELLITUS
     Dosage: 9 U, QD, SUBCUTANEOUS
     Route: 058
     Dates: start: 20070301
  2. NOVOLOG [Concomitant]

REACTIONS (1)
  - DIABETIC COMA [None]
